FAERS Safety Report 7769222-6 (Version None)
Quarter: 2011Q3

REPORT INFORMATION
  Report Type: 
  Country: None (occurrence: None)
  Receive Date: 20110922
  Receipt Date: 20110913
  Transmission Date: 20111222
  Serious: Yes (Death, Hospitalization)
  Sender: FDA-Public Use
  Company Number: CO-MILLENNIUM PHARMACEUTICALS, INC.-2011-03304

PATIENT

DRUGS (2)
  1. VELCADE [Suspect]
     Dosage: 1.3 MG, UNK
     Dates: start: 20110401, end: 20110901
  2. VELCADE [Suspect]
     Indication: MULTIPLE MYELOMA
     Dosage: UNK
     Route: 065
     Dates: start: 20110331

REACTIONS (4)
  - SEPSIS [None]
  - MALNUTRITION [None]
  - FEBRILE NEUTROPENIA [None]
  - DISORIENTATION [None]
